FAERS Safety Report 7660077-7 (Version None)
Quarter: 2011Q3

REPORT INFORMATION
  Report Type: 
  Country: None (occurrence: None)
  Receive Date: 20110805
  Receipt Date: 20110722
  Transmission Date: 20111222
  Serious: Yes (Other)
  Sender: FDA-Public Use
  Company Number: PHHY2011JP47222

PATIENT
  Age: 70 Year
  Sex: Male

DRUGS (4)
  1. RASILEZ [Suspect]
     Dosage: 150 MG, UNK
     Route: 048
  2. DIOVAN [Suspect]
     Dosage: 160 MG, UNK
     Route: 048
  3. DIOVAN [Suspect]
     Dosage: 80 MG, UNK
     Route: 048
  4. DIOVAN [Suspect]
     Dosage: 160 MG, UNK
     Route: 048

REACTIONS (1)
  - RENAL IMPAIRMENT [None]
